FAERS Safety Report 8583829 (Version 2)
Quarter: 2013Q4

REPORT INFORMATION
  Report Type: Report from Study
  Country: AU (occurrence: AU)
  Receive Date: 20120529
  Receipt Date: 20131106
  Transmission Date: 20140711
  Serious: No
  Sender: FDA-Public Use
  Company Number: AU-ROCHE-1072128

PATIENT
  Sex: Female

DRUGS (4)
  1. ACTEMRA [Suspect]
     Indication: RHEUMATOID ARTHRITIS
     Route: 042
     Dates: start: 20101001
  2. VALIUM [Concomitant]
     Route: 065
  3. OXYCONTIN [Concomitant]
  4. ZOTON [Concomitant]

REACTIONS (1)
  - Angina pectoris [Recovered/Resolved]
